FAERS Safety Report 11472698 (Version 1)
Quarter: 2015Q3

REPORT INFORMATION
  Report Type: Report from Study
  Country: IN (occurrence: IN)
  Receive Date: 20150908
  Receipt Date: 20150908
  Transmission Date: 20151125
  Serious: Yes (Hospitalization, Other)
  Sender: FDA-Public Use
  Company Number: IN-BAXTER-2014BAX005420

PATIENT
  Age: 51 Year
  Sex: Female

DRUGS (1)
  1. DIANEAL PD-2 PERITONEAL DIALYSIS SOLUTION WITH DEXTROSE [Suspect]
     Active Substance: CALCIUM CHLORIDE\DEXTROSE\MAGNESIUM CHLORIDE\SODIUM CHLORIDE\SODIUM LACTATE
     Indication: PERITONEAL DIALYSIS
     Dosage: 3 BAGS (2 LITERS EACH)
     Route: 033
     Dates: start: 20121127

REACTIONS (8)
  - Dizziness [Unknown]
  - Feeding disorder [Not Recovered/Not Resolved]
  - Blood glucose abnormal [Unknown]
  - Peripheral coldness [Not Recovered/Not Resolved]
  - Respiratory arrest [Recovered/Resolved]
  - Vomiting [Not Recovered/Not Resolved]
  - Dyspepsia [Unknown]
  - Hyperhidrosis [Not Recovered/Not Resolved]
